FAERS Safety Report 11691517 (Version 2)
Quarter: 2015Q4

REPORT INFORMATION
  Report Type: Spontaneous
  Country: CN (occurrence: CN)
  Receive Date: 20151102
  Receipt Date: 20151121
  Transmission Date: 20160304
  Serious: Yes (Hospitalization)
  Sender: FDA-Public Use
  Company Number: PHHY2015CN141745

PATIENT
  Age: 84 Year

DRUGS (2)
  1. ACLASTA [Suspect]
     Active Substance: ZOLEDRONIC ACID
     Indication: PRODUCT USED FOR UNKNOWN INDICATION
     Route: 042
     Dates: start: 20150824
  2. VITAMIN D3 [Concomitant]
     Active Substance: CHOLECALCIFEROL
     Indication: PRODUCT USED FOR UNKNOWN INDICATION
     Route: 065

REACTIONS (8)
  - Aspartate aminotransferase decreased [Unknown]
  - Alanine aminotransferase decreased [Unknown]
  - Proteinuria [Recovered/Resolved]
  - Urine output decreased [Unknown]
  - Glucose urine present [Unknown]
  - Dysuria [Unknown]
  - Blood creatinine increased [Recovered/Resolved]
  - Urine abnormality [Unknown]

NARRATIVE: CASE EVENT DATE: 20150826
